FAERS Safety Report 7524659-5 (Version None)
Quarter: 2011Q2

REPORT INFORMATION
  Report Type: 
  Country: None (occurrence: None)
  Receive Date: 20110601
  Receipt Date: 20110601
  Transmission Date: 20111010
  Serious: Yes (Hospitalization)
  Sender: FDA-Public Use
  Company Number: None

PATIENT
  Age: 57 Year
  Sex: Male
  Weight: 136.4 kg

DRUGS (11)
  1. METOLAZONE [Suspect]
     Indication: CARDIAC FAILURE
     Dosage: 5 MG DAILY AS NEEDED ORAL
     Route: 048
     Dates: start: 20110305, end: 20110311
  2. METOLAZONE [Suspect]
     Indication: WEIGHT INCREASED
     Dosage: 5 MG DAILY AS NEEDED ORAL
     Route: 048
     Dates: start: 20110305, end: 20110311
  3. FEXOFENADINE [Concomitant]
  4. CARVEDILOL [Concomitant]
  5. ASPIRIN [Concomitant]
  6. LISINOPRIL [Concomitant]
  7. FUROSEMIDE [Concomitant]
  8. METOLAZONE [Concomitant]
  9. TETRACYCLINE [Suspect]
     Indication: UPPER RESPIRATORY TRACT INFECTION
     Dosage: TETRACYCLINE ORAL
     Route: 048
     Dates: start: 20100305, end: 20100311
  10. MONTELUKAST SODIUM [Concomitant]
  11. ATORVASTATIN [Concomitant]

REACTIONS (3)
  - DEHYDRATION [None]
  - PANCREATITIS [None]
  - RENAL FAILURE ACUTE [None]
